FAERS Safety Report 8560423-6 (Version None)
Quarter: 2012Q3

REPORT INFORMATION
  Report Type: 
  Country: None (occurrence: None)
  Receive Date: 20120802
  Receipt Date: 20120706
  Transmission Date: 20120928
  Serious: Yes (Other)
  Sender: FDA-Public Use
  Company Number: JP-BAYER-2012-066390

PATIENT
  Age: 21 Year
  Sex: Female

DRUGS (4)
  1. ASPIRIN [Suspect]
     Indication: KAWASAKI'S DISEASE
     Route: 048
  2. ASPIRIN [Interacting]
     Indication: ANTICOAGULANT THERAPY
  3. DIPYRIDAMOLE [Interacting]
     Indication: ANTICOAGULANT THERAPY
  4. WARFARIN SODIUM [Interacting]
     Indication: ANTICOAGULANT THERAPY
     Route: 048

REACTIONS (2)
  - OVARIAN HAEMORRHAGE [None]
  - SHOCK HAEMORRHAGIC [None]
